FAERS Safety Report 18158119 (Version 1)
Quarter: 2020Q3

REPORT INFORMATION
  Report Type: Spontaneous
  Country: JP (occurrence: JP)
  Receive Date: 20200817
  Receipt Date: 20200817
  Transmission Date: 20201103
  Serious: Yes (Hospitalization)
  Sender: FDA-Public Use
  Company Number: JP-SA-2020SA210163

PATIENT

DRUGS (2)
  1. ELPLAT [Suspect]
     Active Substance: OXALIPLATIN
     Indication: GASTRIC CANCER
     Dosage: UNK UNK, Q3W
     Route: 041
  2. TEGAFUR GIMERACIL AND OTERACIL POTASSIUM [Concomitant]
     Active Substance: GIMERACIL\OTERACIL\TEGAFUR
     Indication: GASTRIC CANCER
     Dosage: ORAL DRUG UNSPECIFIED FORM
     Route: 048

REACTIONS (1)
  - Liver carcinoma ruptured [Unknown]
